FAERS Safety Report 9963978 (Version 1)
Quarter: 2014Q1

REPORT INFORMATION
  Report Type: Spontaneous
  Country: US (occurrence: US)
  Receive Date: 20140305
  Receipt Date: 20140305
  Transmission Date: 20141002
  Serious: Yes (Hospitalization)
  Sender: FDA-Public Use
  Company Number: US-ABBVIE-14P-163-1206272-00

PATIENT
  Age: 58 Year
  Sex: Female
  Weight: 72.64 kg

DRUGS (1)
  1. HUMIRA [Suspect]
     Indication: PSORIASIS
     Dates: start: 2007

REACTIONS (4)
  - Osteoarthritis [Recovering/Resolving]
  - Arthrofibrosis [Not Recovered/Not Resolved]
  - Adhesion [Not Recovered/Not Resolved]
  - Arthropathy [Not Recovered/Not Resolved]
